FAERS Safety Report 7266631-9 (Version None)
Quarter: 2011Q1

REPORT INFORMATION
  Report Type: 
  Country: None (occurrence: None)
  Receive Date: 20110131
  Receipt Date: 20110118
  Transmission Date: 20110831
  Serious: Yes (Hospitalization, Other)
  Sender: FDA-Public Use
  Company Number: US-ELI_LILLY_AND_COMPANY-US200909003752

PATIENT
  Sex: Female

DRUGS (22)
  1. FORTEO [Suspect]
     Dosage: 20 UG, DAILY (1/D)
     Route: 058
  2. OXYBUTYNIN [Concomitant]
     Dosage: 30 MG, DAILY (1/D)
  3. PROVAIR [Concomitant]
  4. FORTEO [Suspect]
     Indication: OSTEOPOROSIS
     Dosage: 20 UG, DAILY (1/D)
     Route: 065
     Dates: start: 20090914
  5. FORTEO [Suspect]
     Dosage: 20 UG, DAILY (1/D)
     Route: 065
  6. SINGULAIR [Concomitant]
     Dosage: 10 MG, DAILY (1/D)
  7. LEXAPRO [Concomitant]
     Dosage: 10 MG, DAILY (1/D)
  8. LUNESTA [Concomitant]
     Dosage: 3 MG, DAILY (1/D)
  9. SPIRIVA [Concomitant]
     Dosage: 1 D/F, DAILY (1/D)
  10. OMEPRAZOLE [Concomitant]
  11. FORTEO [Suspect]
     Dosage: 20 UG, DAILY (1/D)
     Route: 065
  12. FORTEO [Suspect]
     Dosage: 20 UG, DAILY (1/D)
  13. FISH OIL [Concomitant]
     Dosage: 3000 MG, UNK
  14. SIMVASTATIN [Concomitant]
     Dosage: 20 MG, DAILY (1/D)
  15. STOOL SOFTENER [Concomitant]
  16. CIPROFLOXACIN [Concomitant]
  17. ADVAIR [Concomitant]
     Dosage: 2 D/F, DAILY (1/D)
  18. PROAIR HFA [Concomitant]
     Indication: ASTHMA
     Dosage: 2 D/F, DAILY (1/D)
  19. BENADRYL [Concomitant]
  20. COREG [Concomitant]
     Dosage: 20 MG, DAILY (1/D)
  21. CALCIUM [Concomitant]
     Dosage: 3 D/F, UNK
  22. LORTAB [Concomitant]

REACTIONS (15)
  - MALAISE [None]
  - FALL [None]
  - HEADACHE [None]
  - NAUSEA [None]
  - PYREXIA [None]
  - OSTEOARTHRITIS [None]
  - PAIN IN EXTREMITY [None]
  - FATIGUE [None]
  - CHILLS [None]
  - PAIN [None]
  - HIP ARTHROPLASTY [None]
  - FEELING ABNORMAL [None]
  - ASTHENIA [None]
  - EAR DISCOMFORT [None]
  - ARTHRALGIA [None]
